FAERS Safety Report 25705541 (Version 1)
Quarter: 2025Q3

REPORT INFORMATION
  Report Type: Spontaneous
  Country: US (occurrence: None)
  Receive Date: 20250819
  Receipt Date: 20250819
  Transmission Date: 20251021
  Serious: Yes (Disabling, Other)
  Sender: FDA-CTU
  Company Number: None

PATIENT
  Age: 53 Year
  Sex: Female
  Weight: 99 kg

DRUGS (3)
  1. ZICAM COLD REMEDY [Suspect]
     Active Substance: HOMEOPATHICS\ZINC ACETATE\ZINC GLUCONATE
     Indication: Nasopharyngitis
     Route: 050
  2. ZICAM COLD REMEDY [Suspect]
     Active Substance: HOMEOPATHICS\ZINC ACETATE\ZINC GLUCONATE
     Indication: Influenza
  3. Hair Vitamins [Concomitant]

REACTIONS (1)
  - Sinusitis [None]

NARRATIVE: CASE EVENT DATE: 20250807
